FAERS Safety Report 8876432 (Version 1)
Quarter: 2012Q4

REPORT INFORMATION
  Report Type: 
  Country: US (occurrence: US)
  Receive Date: 20121031
  Receipt Date: 20121031
  Transmission Date: 20130627
  Serious: No
  Sender: FDA-Public Use
  Company Number: US-009507513-1210USA007660

PATIENT
  Sex: Male

DRUGS (4)
  1. HYZAAR [Suspect]
     Indication: BLOOD PRESSURE
     Dosage: 100/25 mg, qd
     Route: 048
  2. METFORMIN [Concomitant]
  3. ALLOPURINOL [Concomitant]
  4. VITAMINS (UNSPECIFIED) [Concomitant]

REACTIONS (2)
  - Blood pressure increased [Recovered/Resolved]
  - Blood pressure increased [Not Recovered/Not Resolved]
